FAERS Safety Report 21579015 (Version 1)
Quarter: 2022Q4

REPORT INFORMATION
  Report Type: Spontaneous
  Country: US (occurrence: US)
  Receive Date: 20221110
  Receipt Date: 20221110
  Transmission Date: 20230112
  Serious: No
  Sender: FDA-Public Use
  Company Number: US-SA-SAC20221104000832

PATIENT
  Age: 61 Year
  Sex: Female

DRUGS (1)
  1. DUPIXENT [Suspect]
     Active Substance: DUPILUMAB
     Dosage: 300 MG; OTHER
     Route: 058

REACTIONS (8)
  - Inflammation [Unknown]
  - Skin fissures [Unknown]
  - Pain in extremity [Unknown]
  - Sensory disturbance [Unknown]
  - Musculoskeletal disorder [Unknown]
  - Skin exfoliation [Unknown]
  - Injection site pain [Unknown]
  - Therapeutic response decreased [Unknown]
